FAERS Safety Report 5206264-9 (Version None)
Quarter: 2006Q4

REPORT INFORMATION
  Report Type: 
  Country: None (occurrence: None)
  Receive Date: 20061026
  Receipt Date: 20051209
  Transmission Date: 20070319
  Serious: Yes (Other)
  Sender: FDA-Public Use
  Company Number: 2005167525

PATIENT
  Sex: Female
  Weight: 107.9561 kg

DRUGS (1)
  1. TERRAMYCIN [Suspect]
     Indication: EAR INFECTION

REACTIONS (1)
  - ANAPHYLACTIC REACTION [None]
